FAERS Safety Report 24720941 (Version 1)
Quarter: 2024Q4

REPORT INFORMATION
  Report Type: Spontaneous
  Country: DE (occurrence: DE)
  Receive Date: 20241211
  Receipt Date: 20241211
  Transmission Date: 20250114
  Serious: Yes (Other)
  Sender: BAXTER
  Company Number: DE-BAXTER-2024BAX027888

PATIENT
  Age: 40 Year
  Sex: Female

DRUGS (5)
  1. IFOSFAMIDE [Suspect]
     Active Substance: IFOSFAMIDE
     Indication: Ewing^s sarcoma
     Dosage: 9,000 MG/M2, THE 6TH CYCLE OVERALL, IE THERAPY
     Route: 065
  2. DOXORUBICIN [Suspect]
     Active Substance: DOXORUBICIN
     Indication: Ewing^s sarcoma
     Dosage: FIRST CYCLE OF VDC CHEMOTHERAPY
     Route: 065
  3. ETOPOSIDE [Suspect]
     Active Substance: ETOPOSIDE
     Indication: Ewing^s sarcoma
     Dosage: 500 MG/M2, THE 6TH CYCLE OVERALL, IE THERAPY
     Route: 065
  4. VINCRISTINE [Concomitant]
     Active Substance: VINCRISTINE
     Indication: Ewing^s sarcoma
     Dosage: FIRST CYCLE OF VDC CHEMOTHERAPY
     Route: 065
  5. CYCLOPHOSPHAMIDE [Concomitant]
     Active Substance: CYCLOPHOSPHAMIDE
     Indication: Ewing^s sarcoma
     Dosage: FIRST CYCLE OF VDC CHEMOTHERAPY
     Route: 065

REACTIONS (10)
  - Fanconi syndrome [Unknown]
  - Acidosis hyperchloraemic [Unknown]
  - Renal impairment [Unknown]
  - Renal tubular acidosis [Unknown]
  - Proteinuria [Unknown]
  - Glycosuria [Unknown]
  - Neurotoxicity [Recovering/Resolving]
  - Headache [Recovering/Resolving]
  - Dizziness [Recovering/Resolving]
  - Photopsia [Recovering/Resolving]
